FAERS Safety Report 7854269-1 (Version None)
Quarter: 2011Q4

REPORT INFORMATION
  Report Type: 
  Country: None (occurrence: None)
  Receive Date: 20111026
  Receipt Date: 20111013
  Transmission Date: 20120403
  Serious: Yes (Hospitalization)
  Sender: FDA-Public Use
  Company Number: US-MYLANLABS-2011S1021818

PATIENT
  Age: 9 Year
  Sex: Female
  Weight: 17 kg

DRUGS (9)
  1. AMLODIPINE [Suspect]
     Route: 048
  2. AMLODIPINE [Suspect]
     Indication: HYPERTENSION
     Dosage: 7.5 MG/DAY (5MG IN AM, 2.5MG IN PM)
     Route: 048
  3. CALCITRIOL [Concomitant]
     Dosage: 0.25 MICROG/DAY
     Route: 065
  4. EPOGEN [Concomitant]
     Dosage: 10 000 UNITS EVERY SUNDAY
     Route: 065
  5. ATORVASTATIN [Concomitant]
     Dosage: 10 MG/DAY
     Route: 065
  6. BUDESONIDE [Concomitant]
     Dosage: 3 MG/DAY
     Route: 065
  7. AMLODIPINE [Suspect]
     Dosage: 12.5 MG/DAY (7.5MG IN AM, 5MG IN PM)
     Route: 048
  8. LABETALOL HCL [Concomitant]
     Route: 065
  9. AZATHIOPRINE [Concomitant]
     Dosage: 50 MG/DAY
     Route: 065

REACTIONS (3)
  - GINGIVAL HYPERPLASIA [None]
  - FAILURE TO THRIVE [None]
  - WEIGHT ABNORMAL [None]
